FAERS Safety Report 15092959 (Version 1)
Quarter: 2018Q2

REPORT INFORMATION
  Report Type: Spontaneous
  Country: DE (occurrence: DE)
  Receive Date: 20180629
  Receipt Date: 20180629
  Transmission Date: 20180711
  Serious: Yes (Other)
  Sender: FDA-Public Use
  Company Number: DE-TEVA-2018-DE-915286

PATIENT
  Age: 28 Year
  Sex: Male

DRUGS (37)
  1. FLUOXETINE [Suspect]
     Active Substance: FLUOXETINE HYDROCHLORIDE
     Indication: MYOCLONUS
     Route: 065
  2. FLUOXETINE [Suspect]
     Active Substance: FLUOXETINE HYDROCHLORIDE
     Indication: PARANOIA
  3. DULOXETINE. [Suspect]
     Active Substance: DULOXETINE
     Indication: PARANOIA
  4. BUPROPION. [Suspect]
     Active Substance: BUPROPION
     Indication: ANTIDEPRESSANT THERAPY
     Route: 065
  5. BRIVARACETAM [Concomitant]
     Active Substance: BRIVARACETAM
     Indication: MYOCLONUS
     Dosage: 200-250MG; RECEIVED OVER ONE YEAR
     Route: 065
  6. OLANZAPINE. [Suspect]
     Active Substance: OLANZAPINE
     Indication: ANTIDEPRESSANT THERAPY
     Dosage: ONLY PRESCRIBED FOR SHORT TIME
     Route: 065
  7. ESCITALOPRAM [Suspect]
     Active Substance: ESCITALOPRAM OXALATE
     Indication: ANTIDEPRESSANT THERAPY
     Dosage: 20 MG
     Route: 065
  8. AMISULPRIDE [Suspect]
     Active Substance: AMISULPRIDE
     Indication: ANTIDEPRESSANT THERAPY
     Route: 065
  9. BIPERIDEN [Suspect]
     Active Substance: BIPERIDEN
     Indication: DYSKINESIA
     Route: 065
  10. OXAZEPAM. [Concomitant]
     Active Substance: OXAZEPAM
     Indication: MYOCLONUS
     Dosage: AT DIFFERENT DOSES
     Route: 065
  11. CLOZAPINE. [Suspect]
     Active Substance: CLOZAPINE
     Indication: PARANOIA
  12. MIRTAZAPINE. [Suspect]
     Active Substance: MIRTAZAPINE
     Indication: PARANOIA
  13. RISPERIDONE. [Suspect]
     Active Substance: RISPERIDONE
     Indication: PARANOIA
  14. ZOPICLONE [Suspect]
     Active Substance: ZOPICLONE
     Indication: MYOCLONUS
     Route: 065
  15. DULOXETINE. [Suspect]
     Active Substance: DULOXETINE
     Indication: ANTIDEPRESSANT THERAPY
     Dosage: ONLY PRESCRIBED FOR SHORT TIME
     Route: 065
  16. VENLAFAXINE [Suspect]
     Active Substance: VENLAFAXINE HYDROCHLORIDE
     Indication: PARANOIA
  17. AMISULPRIDE [Suspect]
     Active Substance: AMISULPRIDE
     Indication: PARANOIA
  18. BIPERIDEN [Suspect]
     Active Substance: BIPERIDEN
     Indication: PARANOIA
  19. OXCARBAZEPINE. [Concomitant]
     Active Substance: OXCARBAZEPINE
     Indication: MYOCLONUS
     Dosage: UP TO 2400MG; RECEIVED OVER ONE YEAR
     Route: 065
  20. ZOPICLONE [Suspect]
     Active Substance: ZOPICLONE
     Indication: PARANOIA
  21. QUETIAPINE. [Suspect]
     Active Substance: QUETIAPINE
     Indication: PARANOIA
     Dosage: ONLY PRESCRIBED FOR SHORT TIME
     Route: 065
  22. PROMETHAZINE [Suspect]
     Active Substance: PROMETHAZINE\PROMETHAZINE HYDROCHLORIDE
     Indication: ANTIDEPRESSANT THERAPY
     Dosage: ONLY PRESCRIBED FOR SHORT TIME
     Route: 065
  23. ARIPIPRAZOLE. [Suspect]
     Active Substance: ARIPIPRAZOLE
     Indication: PARANOIA
  24. OLANZAPINE. [Suspect]
     Active Substance: OLANZAPINE
     Indication: PARANOIA
  25. QUETIAPINE. [Suspect]
     Active Substance: QUETIAPINE
     Indication: ANTIDEPRESSANT THERAPY
  26. CLOZAPINE. [Suspect]
     Active Substance: CLOZAPINE
     Indication: ANTIDEPRESSANT THERAPY
     Dosage: 75 MG
     Route: 065
  27. MIRTAZAPINE. [Suspect]
     Active Substance: MIRTAZAPINE
     Indication: ANTIDEPRESSANT THERAPY
     Route: 065
  28. VENLAFAXINE [Suspect]
     Active Substance: VENLAFAXINE HYDROCHLORIDE
     Indication: ANTIDEPRESSANT THERAPY
     Route: 065
  29. RISPERIDONE. [Suspect]
     Active Substance: RISPERIDONE
     Indication: ANTIDEPRESSANT THERAPY
     Route: 065
  30. PROMETHAZINE [Suspect]
     Active Substance: PROMETHAZINE\PROMETHAZINE HYDROCHLORIDE
     Indication: PARANOIA
  31. FLUOXETINE [Suspect]
     Active Substance: FLUOXETINE HYDROCHLORIDE
     Indication: ANTIDEPRESSANT THERAPY
  32. CARBAMAZEPINE. [Concomitant]
     Active Substance: CARBAMAZEPINE
     Indication: MYOCLONUS
     Dosage: UP TO 900 MG
     Route: 065
  33. ZONISAMIDE. [Concomitant]
     Active Substance: ZONISAMIDE
     Indication: MYOCLONUS
     Dosage: UP TO 100MG
     Route: 065
  34. ARIPIPRAZOLE. [Suspect]
     Active Substance: ARIPIPRAZOLE
     Indication: ANTIDEPRESSANT THERAPY
     Dosage: ONLY PRESCRIBED FOR SHORT TIME
     Route: 065
  35. ESCITALOPRAM [Suspect]
     Active Substance: ESCITALOPRAM OXALATE
     Indication: PARANOIA
  36. BUPROPION. [Suspect]
     Active Substance: BUPROPION
     Indication: PARANOIA
  37. CLOBAZAM [Concomitant]
     Active Substance: CLOBAZAM
     Indication: MYOCLONUS
     Dosage: UP TO 20MG
     Route: 065

REACTIONS (5)
  - Drug ineffective [Unknown]
  - Myoclonus [Recovering/Resolving]
  - Schizophreniform disorder [Unknown]
  - Juvenile myoclonic epilepsy [Recovering/Resolving]
  - Dyskinesia [Unknown]
